FAERS Safety Report 4333232-1 (Version None)
Quarter: 2004Q2

REPORT INFORMATION
  Report Type: 
  Country: None (occurrence: None)
  Receive Date: 20040405
  Receipt Date: 20040405
  Transmission Date: 20050107
  Serious: Yes (Hospitalization)
  Sender: FDA-Public Use
  Company Number: None

PATIENT
  Age: 54 Year
  Sex: Female
  Weight: 106.5953 kg

DRUGS (9)
  1. VIOXX [Suspect]
     Indication: ARTHRITIS
     Dosage: DAILY ORAL
     Route: 048
     Dates: start: 20030901, end: 20040329
  2. CYTOMEL [Concomitant]
  3. AVAPRO [Concomitant]
  4. LIPIOTR [Concomitant]
  5. ASPIRIN [Concomitant]
  6. LASIX [Concomitant]
  7. POTASSIUM CHLORIDE [Concomitant]
  8. CELEXA [Concomitant]
  9. SYNTHROID [Concomitant]

REACTIONS (1)
  - IDIOPATHIC THROMBOCYTOPENIC PURPURA [None]
